FAERS Safety Report 6118641-2 (Version None)
Quarter: 2009Q1

REPORT INFORMATION
  Report Type: 
  Country: None (occurrence: None)
  Receive Date: 20090314
  Receipt Date: 20090223
  Transmission Date: 20090719
  Serious: No
  Sender: FDA-Public Use
  Company Number: US-ABBOTT-09P-163-0559164-00

PATIENT
  Sex: Female

DRUGS (2)
  1. HUMIRA [Suspect]
     Indication: PSORIATIC ARTHROPATHY
     Dates: start: 20080801
  2. HUMIRA [Suspect]
     Indication: RHEUMATOID ARTHRITIS

REACTIONS (10)
  - BACK PAIN [None]
  - BLOOD URINE PRESENT [None]
  - DENTAL CARIES [None]
  - NAUSEA [None]
  - SINUSITIS [None]
  - SWELLING FACE [None]
  - TOOTH INFECTION [None]
  - TOOTHACHE [None]
  - VOMITING [None]
  - WHITE BLOOD CELL COUNT DECREASED [None]
